FAERS Safety Report 23386991 (Version 3)
Quarter: 2025Q4

REPORT INFORMATION
  Report Type: Spontaneous
  Country: EU (occurrence: EU)
  Receive Date: 20240110
  Receipt Date: 20251022
  Transmission Date: 20260118
  Serious: Yes (Other)
  Sender: RECORDATI
  Company Number: EU-ORPHANEU-2024000037

PATIENT
  Age: 62 Year
  Sex: Female
  Weight: 55 kg

DRUGS (7)
  1. ISTURISA [Suspect]
     Active Substance: OSILODROSTAT PHOSPHATE
     Indication: Cushing^s syndrome
     Dosage: 1 MILLIGRAM (1 TABLET) ONCE DAILY
     Dates: start: 20210906
  2. ISTURISA [Suspect]
     Active Substance: OSILODROSTAT PHOSPHATE
     Dosage: 1 MILLIGRAM, BID
     Dates: start: 202201
  3. ISTURISA [Suspect]
     Active Substance: OSILODROSTAT PHOSPHATE
     Dosage: 1 MILLIGRAM (AT LUNCH TIME)
     Dates: start: 2023
  4. ISTURISA [Suspect]
     Active Substance: OSILODROSTAT PHOSPHATE
     Dosage: 1 MG, BID (1 MG MORNING AND EVENING)
     Dates: end: 202401
  5. HYDROCORTISONE [Concomitant]
     Active Substance: HYDROCORTISONE
     Indication: Product used for unknown indication
     Dosage: 15 MG PER DAY
  6. HYDROCORTISONE [Concomitant]
     Active Substance: HYDROCORTISONE
     Dosage: 10 MG (STARTED AFTER 15 DAYS OF STARTING ISTURISA)
     Dates: start: 202109
  7. XARELTO [Concomitant]
     Active Substance: RIVAROXABAN
     Indication: Pulmonary embolism
     Dosage: 20 MG PER DAY

REACTIONS (4)
  - Hyperkalaemia [Recovered/Resolved]
  - Sinusitis [Not Recovered/Not Resolved]
  - Blood testosterone increased [Unknown]
  - Off label use [Recovered/Resolved]

NARRATIVE: CASE EVENT DATE: 20210901
